FAERS Safety Report 9434133 (Version 2)
Quarter: 2013Q3

REPORT INFORMATION
  Report Type: Report from Study
  Country: US (occurrence: US)
  Receive Date: 20130801
  Receipt Date: 20130822
  Transmission Date: 20140515
  Serious: Yes (Hospitalization)
  Sender: FDA-Public Use
  Company Number: US-PFIZER INC-2013221363

PATIENT
  Age: 43 Year
  Sex: Male
  Weight: 56.2 kg

DRUGS (7)
  1. DOXORUBICIN HCL [Suspect]
     Indication: SARCOMA METASTATIC
     Dosage: UNK
     Route: 065
     Dates: start: 20120917, end: 20130107
  2. PDGFRA [Suspect]
     Indication: SARCOMA METASTATIC
     Dosage: 891 MG, UNK
     Route: 042
     Dates: start: 20130503, end: 20130531
  3. TYLENOL ER [Concomitant]
     Dosage: UNK
     Dates: start: 201206
  4. IRON [Concomitant]
     Dosage: UNK
  5. EMEND [Concomitant]
     Dosage: UNK
     Dates: start: 20120917
  6. DEXAMETHASONE [Concomitant]
     Dosage: UNK
     Dates: start: 20120917
  7. ZOFRAN [Concomitant]
     Dosage: UNK
     Dates: start: 20120917

REACTIONS (2)
  - Upper gastrointestinal haemorrhage [Recovered/Resolved]
  - Gastrointestinal haemorrhage [Recovering/Resolving]
